FAERS Safety Report 13569234 (Version 2)
Quarter: 2017Q2

REPORT INFORMATION
  Report Type: Report from Study
  Country: JP (occurrence: JP)
  Receive Date: 20170522
  Receipt Date: 20170623
  Transmission Date: 20170830
  Serious: Yes (Hospitalization, Other)
  Sender: FDA-Public Use
  Company Number: JP-UCBSA-2017019034

PATIENT
  Age: 71 Year
  Sex: Female
  Weight: 36 kg

DRUGS (13)
  1. E KEPPRA [Suspect]
     Active Substance: LEVETIRACETAM
     Indication: OFF LABEL USE
  2. E KEPPRA [Suspect]
     Active Substance: LEVETIRACETAM
     Indication: TONIC CONVULSION
     Dosage: 750 MG, 2X/DAY (BID)
     Route: 048
     Dates: start: 20161027
  3. ALEVIATIN [Concomitant]
     Active Substance: PHENYTOIN SODIUM
     Dosage: 75 MG DAILY
     Route: 048
     Dates: start: 20161027
  4. LEVETIRACETAM. [Suspect]
     Active Substance: LEVETIRACETAM
     Indication: OFF LABEL USE
  5. E KEPPRA [Suspect]
     Active Substance: LEVETIRACETAM
     Indication: OFF LABEL USE
  6. ALEVIATIN [Concomitant]
     Active Substance: PHENYTOIN SODIUM
     Dosage: 75 MG DAILY
     Route: 048
     Dates: start: 20161008, end: 20161024
  7. TIENAM [Concomitant]
     Active Substance: CILASTATIN SODIUM\IMIPENEM
     Dosage: 500 MG, 2X/DAY (BID)
     Dates: start: 20161020, end: 20161024
  8. LEVETIRACETAM. [Suspect]
     Active Substance: LEVETIRACETAM
     Indication: TONIC CONVULSION
     Dosage: 500 MG, 2X/DAY (BID)
     Route: 042
     Dates: start: 20161005, end: 201610
  9. TIENAM [Concomitant]
     Active Substance: CILASTATIN SODIUM\IMIPENEM
     Indication: PRODUCT USED FOR UNKNOWN INDICATION
     Dosage: 500 MG, 2X/DAY (BID)
     Dates: start: 20161004, end: 20161010
  10. ALEVIATIN [Concomitant]
     Active Substance: PHENYTOIN SODIUM
     Indication: TONIC CONVULSION
     Dosage: 75MG, DAILY
     Route: 048
     Dates: start: 20161004, end: 201610
  11. TEGRETOL [Concomitant]
     Active Substance: CARBAMAZEPINE
     Indication: TONIC CONVULSION
     Dosage: 400 MG DAILY
     Route: 048
     Dates: start: 20161004, end: 201610
  12. E KEPPRA [Suspect]
     Active Substance: LEVETIRACETAM
     Indication: TONIC CONVULSION
     Dosage: 875 MG, 2X/DAY (BID)
     Route: 048
     Dates: start: 20131008, end: 20161004
  13. TEGRETOL [Concomitant]
     Active Substance: CARBAMAZEPINE
     Dosage: 400 MG DAILY
     Route: 048
     Dates: start: 20161008, end: 20161024

REACTIONS (2)
  - Pneumonia [Recovered/Resolved]
  - Off label use [Unknown]

NARRATIVE: CASE EVENT DATE: 20131008
